FAERS Safety Report 5541470-5 (Version None)
Quarter: 2007Q4

REPORT INFORMATION
  Report Type: 
  Country: None (occurrence: None)
  Receive Date: 20071210
  Receipt Date: 20060201
  Transmission Date: 20080405
  Serious: Yes (Other)
  Sender: FDA-Public Use
  Company Number: US-JNJFOC-20071006728

PATIENT
  Age: 56 Year
  Sex: Female
  Weight: 105 kg

DRUGS (2)
  1. HALOPERIDOL [Suspect]
     Indication: BIPOLAR I DISORDER
     Route: 048
  2. ACE INHIBITORS [Concomitant]
     Indication: HYPERTENSION
     Route: 065

REACTIONS (1)
  - COGNITIVE DISORDER [None]
